FAERS Safety Report 17422464 (Version 1)
Quarter: 2020Q1

REPORT INFORMATION
  Report Type: Spontaneous
  Country: CN (occurrence: CN)
  Receive Date: 20200215
  Receipt Date: 20200215
  Transmission Date: 20200409
  Serious: Yes (Hospitalization, Other)
  Sender: FDA-Public Use
  Company Number: CN-QUAGEN PHARMA LLC-2020QUALIT00041

PATIENT
  Age: 32 Year
  Sex: Female

DRUGS (5)
  1. PROPYLTHIOURACIL TABLETS USP [Suspect]
     Active Substance: PROPYLTHIOURACIL
  2. HYDROCORTISONE. [Suspect]
     Active Substance: HYDROCORTISONE
  3. PROPRANOLOL [Suspect]
     Active Substance: PROPRANOLOL HYDROCHLORIDE
  4. POTASSIUM IODIDE. [Suspect]
     Active Substance: POTASSIUM IODIDE
  5. CEFTRIAXONE. [Interacting]
     Active Substance: CEFTRIAXONE

REACTIONS (4)
  - Respiratory distress [Unknown]
  - Pneumonia [Unknown]
  - Leukocytosis [Unknown]
  - Agranulocytosis [Recovered/Resolved]
